FAERS Safety Report 9687050 (Version 2)
Quarter: 2013Q4

REPORT INFORMATION
  Report Type: Report from Study
  Country: US (occurrence: US)
  Receive Date: 20131113
  Receipt Date: 20131220
  Transmission Date: 20140711
  Serious: Yes (Death)
  Sender: FDA-Public Use
  Company Number: US-US-EMD SERONO, INC.-7249460

PATIENT
  Age: 40 Year
  Sex: Female
  Weight: 100 kg

DRUGS (2)
  1. REBIF [Suspect]
     Indication: CENTRAL NERVOUS SYSTEM LESION
     Dates: start: 20040818
  2. REBIF [Suspect]
     Indication: MULTIPLE SCLEROSIS
     Dates: start: 200411, end: 20070511

REACTIONS (1)
  - Pulmonary oedema [Fatal]
